FAERS Safety Report 25317099 (Version 3)
Quarter: 2025Q4

REPORT INFORMATION
  Report Type: Report from Study
  Country: US (occurrence: US)
  Receive Date: 20250515
  Receipt Date: 20251219
  Transmission Date: 20260118
  Serious: No
  Sender: NOVARTIS
  Company Number: US-002147023-NVSC2025US078508

PATIENT
  Sex: Female

DRUGS (4)
  1. KISQALI [Suspect]
     Active Substance: RIBOCICLIB SUCCINATE
     Indication: Product used for unknown indication
     Dosage: 600 MG
     Route: 065
     Dates: start: 20250415
  2. KISQALI [Suspect]
     Active Substance: RIBOCICLIB SUCCINATE
     Dosage: 400 MG
     Route: 065
     Dates: start: 20250609
  3. KISQALI [Suspect]
     Active Substance: RIBOCICLIB SUCCINATE
     Dosage: 400 MG/KG, OTHER
     Route: 048
  4. LETROZOLE [Concomitant]
     Active Substance: LETROZOLE
     Indication: Product used for unknown indication
     Dosage: 2.5 MG, QD
     Route: 065

REACTIONS (10)
  - White blood cell count decreased [Recovered/Resolved]
  - Headache [Unknown]
  - Photopsia [Recovered/Resolved]
  - Photopsia [Recovered/Resolved]
  - Photopsia [Unknown]
  - Joint swelling [Unknown]
  - Migraine [Unknown]
  - Product storage error [Unknown]
  - Electrocardiogram abnormal [Unknown]
  - Product use issue [Unknown]
